FAERS Safety Report 25726191 (Version 1)
Quarter: 2025Q3

REPORT INFORMATION
  Report Type: Report from Study
  Country: US (occurrence: US)
  Receive Date: 20250826
  Receipt Date: 20250826
  Transmission Date: 20251021
  Serious: Yes (Hospitalization)
  Sender: ABBVIE
  Company Number: US-ABBVIE-6426738

PATIENT
  Age: 85 Year
  Sex: Female

DRUGS (3)
  1. VENCLEXTA [Suspect]
     Active Substance: VENETOCLAX
     Indication: Acute myeloid leukaemia
     Dosage: STRENGTH: 100 MG, TAKING 4 TABLET DAILY THERAPY END DATE 2023
     Route: 048
     Dates: start: 202304
  2. VENCLEXTA [Suspect]
     Active Substance: VENETOCLAX
     Indication: Acute myeloid leukaemia
     Dosage: STRENGTH: 100 MG, TAKING 3 TABLET DAILY, THERAPY END DATE 2023
     Route: 048
     Dates: start: 202305
  3. VENCLEXTA [Suspect]
     Active Substance: VENETOCLAX
     Indication: Acute myeloid leukaemia
     Dosage: STRENGTH: 100 MG, TOOK 2 TABLETS BY MOUTH ONCE DAILY WITH FOOD AND A FULL GLASS DF WATER
     Route: 048
     Dates: start: 202501

REACTIONS (2)
  - Hip fracture [Unknown]
  - Norovirus infection [Unknown]

NARRATIVE: CASE EVENT DATE: 20240101
